FAERS Safety Report 4950957-5 (Version None)
Quarter: 2006Q1

REPORT INFORMATION
  Report Type: 
  Country: None (occurrence: None)
  Receive Date: 20060316
  Receipt Date: 20060308
  Transmission Date: 20060701
  Serious: Yes (Hospitalization)
  Sender: FDA-Public Use
  Company Number: 2006ADE/CIPRO-005

PATIENT
  Age: 80 Year
  Sex: Female

DRUGS (5)
  1. CIPROFLOXACIN [Suspect]
     Dosage: ORAL
     Route: 048
  2. ENALAPRIL AND DIURETICS [Concomitant]
  3. CARTEOLOL HCL [Concomitant]
  4. PREDNISOLONE [Concomitant]
  5. RANITIDINE [Concomitant]

REACTIONS (1)
  - ACUTE GENERALISED EXANTHEMATOUS PUSTULOSIS [None]
